FAERS Safety Report 21130504 (Version 1)
Quarter: 2022Q3

REPORT INFORMATION
  Report Type: Spontaneous
  Country: IT (occurrence: IT)
  Receive Date: 20220726
  Receipt Date: 20220726
  Transmission Date: 20221027
  Serious: Yes (Other)
  Sender: FDA-Public Use
  Company Number: IT-MINISAL02-874798

PATIENT
  Age: 48 Year
  Sex: Male
  Weight: 85 kg

DRUGS (1)
  1. RIFAXIMIN [Suspect]
     Active Substance: RIFAXIMIN
     Indication: Diarrhoea
     Dosage: 2 TABLETS OF 200 MG IN THE MORNING AND 2 TABLETS IN THE EVENING
     Route: 048
     Dates: start: 20220622, end: 20220625

REACTIONS (3)
  - Diarrhoea haemorrhagic [Recovered/Resolved]
  - Photophobia [Recovering/Resolving]
  - Conjunctivitis [Recovering/Resolving]

NARRATIVE: CASE EVENT DATE: 20220623
